FAERS Safety Report 5747110-4 (Version None)
Quarter: 2008Q2

REPORT INFORMATION
  Report Type: 
  Country: None (occurrence: None)
  Receive Date: 20080522
  Receipt Date: 20080519
  Transmission Date: 20081010
  Serious: Yes (Other)
  Sender: FDA-Public Use
  Company Number: PHHY2008AU08321

PATIENT
  Sex: Male

DRUGS (2)
  1. RITALIN [Suspect]
     Dosage: 10 MG, UNK
  2. RITALIN [Suspect]
     Dosage: 80 MG, UNK

REACTIONS (3)
  - ANXIETY [None]
  - CONFUSIONAL STATE [None]
  - PARANOIA [None]
